FAERS Safety Report 8352038-X (Version None)
Quarter: 2012Q2

REPORT INFORMATION
  Report Type: 
  Country: None (occurrence: None)
  Receive Date: 20120510
  Receipt Date: 20120510
  Transmission Date: 20120825
  Serious: No
  Sender: FDA-Public Use
  Company Number: None

PATIENT
  Age: 52 Year
  Sex: Male

DRUGS (7)
  1. REVLIMID [Suspect]
     Indication: MULTIPLE MYELOMA
     Dosage: REVLIMID 10 MG DAILY ORALLY
     Route: 048
     Dates: start: 20120401
  2. HYDROCHLOROTHIAZIDE [Concomitant]
  3. ATOVAQUONE [Concomitant]
  4. URSODIOL [Concomitant]
  5. ACYCLOVIR [Concomitant]
  6. FAMOTIDINE 	. [Concomitant]
  7. AMLODIPINE BESYLATE [Concomitant]

REACTIONS (3)
  - RASH ERYTHEMATOUS [None]
  - EXFOLIATIVE RASH [None]
  - RASH MACULO-PAPULAR [None]
